FAERS Safety Report 20776760 (Version 2)
Quarter: 2022Q2

REPORT INFORMATION
  Report Type: Report from Study
  Country: US (occurrence: US)
  Receive Date: 20220502
  Receipt Date: 20220527
  Transmission Date: 20220720
  Serious: Yes (Hospitalization)
  Sender: FDA-Public Use
  Company Number: US-PFIZER INC-202200617468

PATIENT
  Age: 79 Year
  Sex: Female
  Weight: 42.222 kg

DRUGS (1)
  1. TORISEL [Suspect]
     Active Substance: TEMSIROLIMUS
     Dosage: 2.5 MG/DOSE
     Route: 042

REACTIONS (3)
  - Pulmonary fibrosis [Recovering/Resolving]
  - Hypoxia [Recovering/Resolving]
  - Dyspnoea [Not Recovered/Not Resolved]
